FAERS Safety Report 5206300-X (Version None)
Quarter: 2007Q1

REPORT INFORMATION
  Report Type: 
  Country: None (occurrence: None)
  Receive Date: 20070111
  Receipt Date: 20070104
  Transmission Date: 20070707
  Serious: Yes (Hospitalization)
  Sender: FDA-Public Use
  Company Number: FR-BOEHRINGER INGELHEIM PHARMACEUTICALS, INC.-2007-FF-00009FF

PATIENT
  Age: 70 Year
  Sex: Female

DRUGS (5)
  1. PERSANTINE [Suspect]
     Indication: SCINTIGRAPHY
     Route: 042
     Dates: start: 20061001
  2. TENORMIN [Concomitant]
     Indication: HYPERTENSION
  3. ZESTORETIC [Concomitant]
     Indication: HYPERTENSION
  4. HYPERIUM [Concomitant]
     Indication: HYPERTENSION
  5. EZETROL [Concomitant]
     Indication: HYPERCHOLESTEROLAEMIA

REACTIONS (2)
  - EPISTAXIS [None]
  - THROMBOCYTOPENIA [None]
